FAERS Safety Report 24451495 (Version 4)
Quarter: 2024Q4

REPORT INFORMATION
  Report Type: Spontaneous
  Country: US (occurrence: US)
  Receive Date: 20241017
  Receipt Date: 20241120
  Transmission Date: 20250115
  Serious: Yes (Other)
  Sender: PFIZER
  Company Number: US-PFIZER INC-PV202400134765

PATIENT
  Age: 68 Year
  Sex: Female

DRUGS (1)
  1. IBRANCE [Suspect]
     Active Substance: PALBOCICLIB
     Dosage: 125 MG

REACTIONS (6)
  - Immobile [Unknown]
  - Fatigue [Unknown]
  - Back pain [Unknown]
  - Musculoskeletal chest pain [Unknown]
  - Myalgia [Unknown]
  - Alopecia [Unknown]

NARRATIVE: CASE EVENT DATE: 20240801
